FAERS Safety Report 6424688-9 (Version None)
Quarter: 2009Q4

REPORT INFORMATION
  Report Type: 
  Country: None (occurrence: None)
  Receive Date: 20091103
  Receipt Date: 20091021
  Transmission Date: 20100525
  Serious: Yes (Hospitalization, Other)
  Sender: FDA-Public Use
  Company Number: PHHY2009BR46060

PATIENT
  Sex: Male

DRUGS (8)
  1. DIOVAN AMLO FIX [Suspect]
     Dosage: 320/5 MG
  2. GALVUS [Suspect]
     Dosage: 50 MG, UNK
  3. AMARYL [Concomitant]
     Dosage: 500 MG, UNK
  4. HYDRALAZINE HYDROCHLORIDE [Concomitant]
     Dosage: 50 MG, UNK
  5. VASOGARD [Concomitant]
     Dosage: 100 MG, UNK
  6. FLUOXETINE HCL [Concomitant]
     Dosage: 20 MG, UNK
  7. FRONTAL [Concomitant]
  8. AAS [Concomitant]

REACTIONS (3)
  - DIABETES MELLITUS [None]
  - EYE DISORDER [None]
  - ISCHAEMIA [None]
